FAERS Safety Report 16609051 (Version 1)
Quarter: 2019Q3

REPORT INFORMATION
  Report Type: Spontaneous
  Country: US (occurrence: US)
  Receive Date: 20190720
  Receipt Date: 20190720
  Transmission Date: 20191004
  Serious: Yes (Other)
  Sender: FDA-Public Use
  Company Number: None

PATIENT
  Age: 41 Year
  Sex: Male
  Weight: 96.75 kg

DRUGS (4)
  1. ALBUTERAL INH [Concomitant]
  2. AMUITY 200 MG [Concomitant]
  3. VENLAFAXINE 75MG [Suspect]
     Active Substance: VENLAFAXINE HYDROCHLORIDE
     Indication: ANXIETY
     Dosage: ?          QUANTITY:1 CAPSULE(S);?
     Route: 048
  4. LISINOPRIL 20 MG [Concomitant]
     Active Substance: LISINOPRIL

REACTIONS (3)
  - Erectile dysfunction [None]
  - Quality of life decreased [None]
  - Anxiety [None]

NARRATIVE: CASE EVENT DATE: 20190101
